FAERS Safety Report 8622495-X (Version None)
Quarter: 2012Q3

REPORT INFORMATION
  Report Type: 
  Country: None (occurrence: None)
  Receive Date: 20120827
  Receipt Date: 20120824
  Transmission Date: 20120928
  Serious: No
  Sender: FDA-Public Use
  Company Number: US-PFIZER INC-2012208796

PATIENT
  Age: 62 Year
  Sex: Female

DRUGS (2)
  1. ATORVASTATIN CALCIUM [Suspect]
     Indication: LOW DENSITY LIPOPROTEIN ABNORMAL
     Dosage: 40 MG, DAILY
     Dates: start: 20110101, end: 20110101
  2. SYNTHROID [Concomitant]
     Dosage: UNK

REACTIONS (2)
  - GASTRIC DISORDER [None]
  - VOMITING PROJECTILE [None]
